FAERS Safety Report 18945795 (Version 2)
Quarter: 2021Q1

REPORT INFORMATION
  Report Type: Spontaneous
  Country: IT (occurrence: IT)
  Receive Date: 20210226
  Receipt Date: 20210302
  Transmission Date: 20210420
  Serious: Yes (Hospitalization)
  Sender: FDA-Public Use
  Company Number: IT-TEVA-2021-IT-1883392

PATIENT
  Age: 57 Year
  Sex: Male
  Weight: 78 kg

DRUGS (2)
  1. CARBOPLATINO TEVA [Suspect]
     Active Substance: CARBOPLATIN
     Indication: LUNG NEOPLASM MALIGNANT
     Dosage: 420MILLIGRAM
     Route: 042
     Dates: start: 20210129, end: 20210129
  2. ALIMTA [Suspect]
     Active Substance: PEMETREXED DISODIUM
     Indication: LUNG NEOPLASM MALIGNANT
     Dosage: 500MG/M2
     Route: 042
     Dates: start: 20201210, end: 20210129

REACTIONS (4)
  - Anaemia [Unknown]
  - Neutropenia [Unknown]
  - Mucosal inflammation [Unknown]
  - Hypercreatininaemia [Unknown]

NARRATIVE: CASE EVENT DATE: 20210207
